FAERS Safety Report 7955116-X (Version None)
Quarter: 2011Q4

REPORT INFORMATION
  Report Type: 
  Country: None (occurrence: None)
  Receive Date: 20111202
  Receipt Date: 20111130
  Transmission Date: 20120403
  Serious: No
  Sender: FDA-Public Use
  Company Number: US-PFIZER INC-2011293449

PATIENT
  Sex: Male
  Weight: 16.327 kg

DRUGS (2)
  1. CHILDREN'S ADVIL [Suspect]
     Indication: PYREXIA
     Dosage: ONE AND HALF TEA SPOON, 3X/DAY
     Route: 048
     Dates: start: 20110101, end: 20110101
  2. CHILDREN'S ADVIL [Suspect]
     Dosage: ONE AND HALF TEA SPOON, 3X/DAY
     Route: 048
     Dates: start: 20110101, end: 20110101

REACTIONS (1)
  - EYE SWELLING [None]
